FAERS Safety Report 8216845-6 (Version None)
Quarter: 2012Q1

REPORT INFORMATION
  Report Type: 
  Country: None (occurrence: None)
  Receive Date: 20120316
  Receipt Date: 20120307
  Transmission Date: 20120608
  Serious: Yes (Hospitalization, Other)
  Sender: FDA-Public Use
  Company Number: CA-ASTRAZENECA-2011SE67281

PATIENT
  Sex: Male

DRUGS (1)
  1. CRESTOR [Suspect]
     Route: 048
     Dates: start: 20090901

REACTIONS (13)
  - NOCTURIA [None]
  - POLLAKIURIA [None]
  - FATIGUE [None]
  - MUSCULOSKELETAL PAIN [None]
  - CONFUSIONAL STATE [None]
  - TREMOR [None]
  - PAIN IN EXTREMITY [None]
  - MOOD SWINGS [None]
  - AMNESIA [None]
  - RESTLESSNESS [None]
  - PARTIAL SEIZURES [None]
  - HEADACHE [None]
  - CONVULSION [None]
